FAERS Safety Report 8950481 (Version 1)
Quarter: 2012Q4

REPORT INFORMATION
  Report Type: Spontaneous
  Country: US (occurrence: None)
  Receive Date: 20121204
  Receipt Date: 20121204
  Transmission Date: 20130627
  Serious: Yes (Other)
  Sender: FDA-Public Use
  Company Number: None

PATIENT
  Age: 82 Year
  Sex: Male
  Weight: 95.71 kg

DRUGS (1)
  1. LEVOFLOXACIN [Suspect]
     Indication: BRONCHITIS ASTHMATIC
     Dosage: 500mg daily po
     Route: 048
     Dates: start: 20121025, end: 20121026

REACTIONS (7)
  - Headache [None]
  - Muscle tightness [None]
  - Neck pain [None]
  - Muscular weakness [None]
  - Bladder disorder [None]
  - Cardiac disorder [None]
  - Oedema peripheral [None]
